FAERS Safety Report 13683160 (Version 3)
Quarter: 2018Q3

REPORT INFORMATION
  Report Type: Spontaneous
  Country: JP (occurrence: JP)
  Receive Date: 20170623
  Receipt Date: 20180914
  Transmission Date: 20181010
  Serious: Yes (Hospitalization)
  Sender: FDA-Public Use
  Company Number: JP-ACTELION-A-CH2016-147529

PATIENT
  Age: 47 Year
  Sex: Male
  Weight: 86 kg

DRUGS (46)
  1. NEOMALLERMIN TR [Concomitant]
     Dosage: 6 MG, UNK
     Dates: start: 20170221
  2. UPTRAVI [Suspect]
     Active Substance: SELEXIPAG
     Dosage: 0.4 MG, BID
     Route: 048
     Dates: start: 20170403
  3. UPTRAVI [Suspect]
     Active Substance: SELEXIPAG
     Dosage: 1.4 MG, QD
     Route: 048
     Dates: start: 20170627
  4. UPTRAVI [Suspect]
     Active Substance: SELEXIPAG
     Dosage: 0.8 MG, BID
     Route: 048
     Dates: start: 20170724
  5. UPTRAVI [Suspect]
     Active Substance: SELEXIPAG
     Dosage: 1.8 MG, QD
     Route: 048
     Dates: start: 20171023
  6. AZUNOL [Concomitant]
     Active Substance: SODIUM GUALENATE
     Dosage: UNK
     Dates: start: 20170221
  7. BLOPRESS [Concomitant]
     Active Substance: CANDESARTAN CILEXETIL
     Dosage: 4 MG, UNK
     Dates: start: 20060104, end: 20170306
  8. CEFDINIR. [Concomitant]
     Active Substance: CEFDINIR
     Dosage: 300 MG, UNK
     Dates: start: 20170606, end: 20170611
  9. SUMILU [Concomitant]
     Active Substance: FELBINAC
     Dosage: UNK
     Dates: start: 20180227
  10. RINDERON V [Concomitant]
     Active Substance: BETAMETHASONE VALERATE
     Dosage: UNK
     Dates: start: 20180522
  11. UPTRAVI [Suspect]
     Active Substance: SELEXIPAG
     Dosage: 1 MG, QD
     Route: 048
     Dates: start: 20170509
  12. ADCIRCA [Concomitant]
     Active Substance: TADALAFIL
     Indication: PULMONARY ARTERIAL HYPERTENSION
     Dosage: 40 MG, QD
     Dates: start: 20170529
  13. MUCOSTA [Concomitant]
     Active Substance: REBAMIPIDE
  14. HEPARINOID [Concomitant]
     Active Substance: CHONDROITIN SULFATE (BOVINE)
     Dosage: UNK
     Dates: start: 20180522
  15. UPTRAVI [Suspect]
     Active Substance: SELEXIPAG
     Dosage: 0.2 MG, BID
     Route: 048
     Dates: start: 20170123
  16. UPTRAVI [Suspect]
     Active Substance: SELEXIPAG
     Dosage: 0.6 MG, BID
     Route: 048
     Dates: start: 20170501, end: 20170508
  17. UPTRAVI [Suspect]
     Active Substance: SELEXIPAG
     Dosage: 0.6 MG, BID
     Route: 048
     Dates: start: 20170529
  18. UPTRAVI [Suspect]
     Active Substance: SELEXIPAG
     Dosage: 1.0 MG, BID
     Route: 048
     Dates: start: 20180122
  19. UPTRAVI [Suspect]
     Active Substance: SELEXIPAG
     Dosage: 2.2 MG, QD
     Route: 048
     Dates: start: 20180416
  20. PL [Concomitant]
     Active Substance: ACETAMINOPHEN\CAFFEINE\PROMETHAZINE\SALICYLAMIDE
     Dosage: UNK
     Dates: start: 20161220, end: 20161227
  21. BIO?THREE [Concomitant]
     Active Substance: HERBALS
     Dosage: 3 DF, UNK
  22. ALLELOCK [Concomitant]
     Active Substance: OLOPATADINE HYDROCHLORIDE
     Dosage: 10 MG, UNK
     Dates: start: 20170221
  23. ACUATIM [Concomitant]
     Active Substance: NADIFLOXACIN
     Dosage: UNK
     Dates: start: 20170411
  24. DOMPERIDONE [Concomitant]
     Active Substance: DOMPERIDONE
     Dosage: 10 MG, UNK
     Dates: start: 20171225
  25. UPTRAVI [Suspect]
     Active Substance: SELEXIPAG
     Dosage: 0.2 MG, QD
     Route: 048
     Dates: start: 20161226
  26. PARIET [Concomitant]
     Active Substance: RABEPRAZOLE SODIUM
     Dosage: 10 MG, UNK
     Dates: start: 20080108
  27. FLOMOX [Concomitant]
     Active Substance: CEFCAPENE PIVOXIL HYDROCHLORIDE HYDRATE
     Dosage: 300 MG, UNK
     Dates: start: 20161220
  28. FULMETA [Concomitant]
     Active Substance: MOMETASONE
     Dosage: UNK
     Dates: start: 20170411
  29. CARBOCISTEINE [Concomitant]
     Active Substance: CARBOCYSTEINE
     Dosage: 100 MG, UNK
     Dates: start: 20170606
  30. DEXALTIN [Concomitant]
     Active Substance: DEXAMETHASONE
     Dosage: UNK
     Dates: start: 20180219
  31. PROTOPIC [Concomitant]
     Active Substance: TACROLIMUS
     Dosage: UNK
     Dates: start: 20180522
  32. OPSUMIT [Concomitant]
     Active Substance: MACITENTAN
     Indication: PULMONARY ARTERIAL HYPERTENSION
     Dosage: 10 MG, QD
     Route: 048
     Dates: start: 20160613
  33. REVATIO [Concomitant]
     Active Substance: SILDENAFIL CITRATE
     Indication: PULMONARY ARTERIAL HYPERTENSION
     Dosage: 60 MG, QD
     Dates: start: 20100324, end: 20170529
  34. LOXONIN [Concomitant]
     Active Substance: LOXOPROFEN SODIUM
     Dosage: 100 MG, UNK
     Dates: start: 20161220
  35. FEBURIC [Concomitant]
     Active Substance: FEBUXOSTAT
     Dosage: 40 MG, UNK
     Dates: start: 20161220
  36. UPTRAVI [Suspect]
     Active Substance: SELEXIPAG
     Indication: PULMONARY ARTERIAL HYPERTENSION
     Dosage: 0.2 MG, BID
     Route: 048
     Dates: start: 20161208, end: 20161225
  37. UPTRAVI [Suspect]
     Active Substance: SELEXIPAG
     Dosage: 0.6 MG, QD
     Route: 048
     Dates: start: 20170306
  38. SELARA [Concomitant]
     Active Substance: EPLERENONE
     Dosage: 50 MG, UNK
     Dates: end: 20170306
  39. STROCAIN [Concomitant]
     Active Substance: OXETHAZAINE
     Dosage: 5 MG, UNK
     Dates: start: 20161220
  40. RESTAMIN [Concomitant]
     Active Substance: DIPHENHYDRAMINE
     Dosage: UNK
     Dates: start: 20170411
  41. ERYTHROCIN [Concomitant]
     Active Substance: ERYTHROMYCIN LACTOBIONATE
     Dosage: 350 MG, UNK
     Dates: start: 20170613, end: 20170629
  42. LASIX [Concomitant]
     Active Substance: FUROSEMIDE
     Dosage: 40 MG, UNK
     Dates: start: 20051128
  43. ARTIST [Concomitant]
     Active Substance: CARVEDILOL
     Dosage: 2.5 MG, UNK
     Dates: start: 20060522, end: 20170306
  44. NERISONA [Concomitant]
     Active Substance: DIFLUCORTOLONE VALERATE
     Dosage: UNK
     Dates: start: 20170221
  45. MEDICON [Concomitant]
     Active Substance: DEXTROMETHORPHAN HYDROBROMIDE
     Dosage: 30 MG, UNK
     Dates: start: 20170606
  46. ATARAX?P [Concomitant]
     Active Substance: HYDROXYZINE HYDROCHLORIDE
     Dosage: 25 MG, UNK
     Dates: start: 20170627

REACTIONS (10)
  - Pain in jaw [Unknown]
  - Headache [Not Recovered/Not Resolved]
  - Plantar fasciitis [Not Recovered/Not Resolved]
  - Rash [Unknown]
  - Diarrhoea [Not Recovered/Not Resolved]
  - Pain [Unknown]
  - Stomatitis [Unknown]
  - Pain in extremity [Not Recovered/Not Resolved]
  - Nausea [Unknown]
  - Pneumonia [Recovered/Resolved]

NARRATIVE: CASE EVENT DATE: 20161210
